FAERS Safety Report 12457622 (Version 1)
Quarter: 2016Q2

REPORT INFORMATION
  Report Type: Spontaneous
  Country: US (occurrence: US)
  Receive Date: 20160610
  Receipt Date: 20160610
  Transmission Date: 20160815
  Serious: Yes (Other)
  Sender: FDA-Public Use
  Company Number: US-BAXALTA-2016BLT001540

PATIENT
  Age: 19 Year
  Sex: Male

DRUGS (1)
  1. ADVATE [Suspect]
     Active Substance: ANTIHEMOPHILIC FACTOR, HUMAN RECOMBINANT
     Indication: FACTOR VII DEFICIENCY
     Dosage: 2606 IU, 2X A WEEK
     Route: 065

REACTIONS (3)
  - Pain [Unknown]
  - Swelling [Unknown]
  - Haemorrhage [Unknown]
